FAERS Safety Report 11597014 (Version 1)
Quarter: 2015Q4

REPORT INFORMATION
  Report Type: Spontaneous
  Country: US (occurrence: None)
  Receive Date: 20151005
  Receipt Date: 20151005
  Transmission Date: 20160304
  Serious: Yes (Other)
  Sender: FDA-Public Use
  Company Number: None

PATIENT
  Age: 59 Year
  Sex: Female
  Weight: 80.29 kg

DRUGS (4)
  1. METRONIDAZOLE 500MG TEVA [Suspect]
     Active Substance: METRONIDAZOLE
     Indication: GINGIVAL DISORDER
     Route: 048
     Dates: start: 20150923, end: 20150930
  2. MULTIVITAMIN [Concomitant]
     Active Substance: VITAMINS
  3. CALCIUM [Concomitant]
     Active Substance: CALCIUM
  4. ONE LOW-DOSE ASPIRIN [Concomitant]

REACTIONS (2)
  - Pruritus [None]
  - Urticaria [None]

NARRATIVE: CASE EVENT DATE: 20150930
